FAERS Safety Report 15035399 (Version 1)
Quarter: 2018Q2

REPORT INFORMATION
  Report Type: Spontaneous
  Country: US (occurrence: US)
  Receive Date: 20180529
  Receipt Date: 20180529
  Transmission Date: 20180711
  Serious: Yes (Hospitalization)
  Sender: FDA-Public Use
  Company Number: None

PATIENT
  Age: 80 Year
  Sex: Male

DRUGS (1)
  1. SULFAMETHOXAZOLE/TRIMETHOPRIM [Suspect]
     Active Substance: SULFAMETHOXAZOLE\TRIMETHOPRIM
     Indication: SURGERY
     Route: 048
     Dates: start: 20180222, end: 20180222

REACTIONS (19)
  - Tachycardia [None]
  - Bradycardia [None]
  - Hypertension [None]
  - Hyperhidrosis [None]
  - Swollen tongue [None]
  - Paraesthesia [None]
  - Seizure [None]
  - Nausea [None]
  - Malaise [None]
  - Disorientation [None]
  - Hypoxia [None]
  - Cardiac arrest [None]
  - Restlessness [None]
  - Miosis [None]
  - Respiratory distress [None]
  - Vomiting [None]
  - Anaphylactic reaction [None]
  - Hypersensitivity [None]
  - Pulseless electrical activity [None]

NARRATIVE: CASE EVENT DATE: 20180222
